FAERS Safety Report 11076532 (Version 2)
Quarter: 2015Q2

REPORT INFORMATION
  Report Type: Spontaneous
  Country: US (occurrence: US)
  Receive Date: 20150429
  Receipt Date: 20150609
  Transmission Date: 20150821
  Serious: No
  Sender: FDA-Public Use
  Company Number: US-GLAXOSMITHKLINE-US2015057750

PATIENT
  Sex: Female

DRUGS (3)
  1. GUAIFENESIN. [Concomitant]
     Active Substance: GUAIFENESIN
  2. VENTOLIN [Suspect]
     Active Substance: ALBUTEROL SULFATE
     Indication: BRONCHITIS
     Dosage: 1 PUFF(S), 1D
     Route: 055
     Dates: start: 20150428
  3. CALCIUM [Concomitant]
     Active Substance: CALCIUM

REACTIONS (3)
  - Drug ineffective [Not Recovered/Not Resolved]
  - Device use error [Not Recovered/Not Resolved]
  - Product quality issue [Unknown]
